FAERS Safety Report 14033100 (Version 1)
Quarter: 2017Q4

REPORT INFORMATION
  Report Type: Spontaneous
  Country: US (occurrence: None)
  Receive Date: 20171002
  Receipt Date: 20171002
  Transmission Date: 20180321
  Serious: Yes (Death)
  Sender: FDA-Public Use
  Company Number: None

PATIENT
  Age: 64 Year

DRUGS (7)
  1. ACETAMIN [Concomitant]
     Active Substance: ACETAMINOPHEN
  2. SENEXON [Concomitant]
     Active Substance: SENNOSIDES A AND B
  3. ONDANSETRON [Concomitant]
     Active Substance: ONDANSETRON
  4. ESBRIET [Suspect]
     Active Substance: PIRFENIDONE
     Indication: IDIOPATHIC PULMONARY FIBROSIS
     Route: 048
     Dates: start: 20170613, end: 20170928
  5. MORPHINE [Concomitant]
     Active Substance: MORPHINE
  6. HALOPERIDOL. [Concomitant]
     Active Substance: HALOPERIDOL
  7. LORAZEPAM. [Concomitant]
     Active Substance: LORAZEPAM

REACTIONS (1)
  - Hospitalisation [None]
